FAERS Safety Report 9087143 (Version 2)
Quarter: 2013Q1

REPORT INFORMATION
  Report Type: Report from Study
  Country: US (occurrence: US)
  Receive Date: 20130131
  Receipt Date: 20130301
  Transmission Date: 20140127
  Serious: Yes (Death)
  Sender: FDA-Public Use
  Company Number: US-ROCHE-1186051

PATIENT
  Sex: Female

DRUGS (1)
  1. BEVACIZUMAB [Suspect]
     Indication: NEOPLASM MALIGNANT
     Route: 065

REACTIONS (1)
  - Neoplasm progression [Fatal]
